FAERS Safety Report 22538730 (Version 1)
Quarter: 2023Q2

REPORT INFORMATION
  Report Type: Spontaneous
  Country: CZ (occurrence: CZ)
  Receive Date: 20230609
  Receipt Date: 20230609
  Transmission Date: 20230722
  Serious: Yes (Life-Threatening, Hospitalization, Other)
  Sender: FDA-Public Use
  Company Number: None

PATIENT
  Age: 23 Year
  Sex: Female

DRUGS (5)
  1. QUETIAPINE [Suspect]
     Active Substance: QUETIAPINE
     Indication: Suicide attempt
     Route: 065
     Dates: start: 20210305, end: 20210305
  2. HALOPERIDOL [Suspect]
     Active Substance: HALOPERIDOL
     Indication: Suicide attempt
     Route: 065
     Dates: start: 20210305, end: 20210305
  3. HERBALS\MELISSA OFFICINALIS LEAF\PEPPERMINT EXTRACT\VALERIAN [Suspect]
     Active Substance: HERBALS\MELISSA OFFICINALIS LEAF\PEPPERMINT EXTRACT\VALERIAN
     Indication: Product used for unknown indication
     Route: 065
  4. ACETAMINOPHEN [Suspect]
     Active Substance: ACETAMINOPHEN
     Indication: Suicide attempt
     Dosage: 12 TABLETS
     Route: 065
     Dates: start: 20210305, end: 20210305
  5. MAGNE B6 [Suspect]
     Active Substance: MAGNESIUM\PYRIDOXINE
     Indication: Product used for unknown indication
     Route: 065

REACTIONS (3)
  - Somnolence [Unknown]
  - Suicide attempt [Unknown]
  - Intentional overdose [Unknown]

NARRATIVE: CASE EVENT DATE: 20210305
